FAERS Safety Report 5496432-3 (Version None)
Quarter: 2007Q4

REPORT INFORMATION
  Report Type: 
  Country: None (occurrence: None)
  Receive Date: 20071025
  Receipt Date: 20071022
  Transmission Date: 20080405
  Serious: Yes (Other)
  Sender: FDA-Public Use
  Company Number: GB-WYE-G00501207

PATIENT
  Sex: Female

DRUGS (1)
  1. RAPAMUNE [Suspect]
     Dosage: UNKNOWN ACCIDENTAL DOSE
     Dates: start: 20071021, end: 20071021

REACTIONS (3)
  - ACCIDENTAL EXPOSURE [None]
  - EYE INJURY [None]
  - EYE PAIN [None]
